FAERS Safety Report 25199095 (Version 1)
Quarter: 2025Q2

REPORT INFORMATION
  Report Type: Report from Study
  Country: US (occurrence: US)
  Receive Date: 20250415
  Receipt Date: 20250415
  Transmission Date: 20250717
  Serious: Yes (Hospitalization)
  Sender: SAREPTA THERAPEUTICS
  Company Number: US-SAREPTA THERAPEUTICS INC.-SRP2025-005510

PATIENT
  Age: 22 Year
  Sex: Male
  Weight: 63.5 kg

DRUGS (15)
  1. CASIMERSEN [Suspect]
     Active Substance: CASIMERSEN
     Indication: Duchenne muscular dystrophy
     Route: 042
     Dates: end: 20250107
  2. CASIMERSEN [Suspect]
     Active Substance: CASIMERSEN
     Route: 042
     Dates: start: 20250204
  3. BISOPROLOL [Concomitant]
     Active Substance: BISOPROLOL
     Indication: Product used for unknown indication
     Dosage: 2.5 MILLIGRAM, QD
     Route: 048
  4. DDD CHOLECALCIFEROL (VITAMIN D3) [Concomitant]
     Indication: Duchenne muscular dystrophy
     Dosage: 4000 IU INTERNATIONAL UNIT(S), QD
     Route: 048
  5. DDD CHOLECALCIFEROL (VITAMIN D3) [Concomitant]
     Indication: Bone density decreased
  6. DDD CHOLECALCIFEROL (VITAMIN D3) [Concomitant]
     Indication: Vitamin D deficiency
  7. CREATINE MONOHYDRATE [Concomitant]
     Active Substance: CREATINE MONOHYDRATE
     Indication: Product used for unknown indication
     Dosage: UNK, BID
     Route: 048
  8. DIGOXIN [Concomitant]
     Active Substance: DIGOXIN
     Indication: Duchenne muscular dystrophy
     Dosage: 0.125 MILLIGRAM, QD
     Route: 048
  9. JARDIANCE [Concomitant]
     Active Substance: EMPAGLIFLOZIN
     Indication: Product used for unknown indication
     Dosage: 10 MILLIGRAM, QD
     Route: 048
  10. LIDOCAINE\PRILOCAINE HYDROCHLORIDE [Concomitant]
     Active Substance: LIDOCAINE\PRILOCAINE HYDROCHLORIDE
     Indication: Product used for unknown indication
     Dosage: UNK, QD
  11. LISINOPRIL [Concomitant]
     Active Substance: LISINOPRIL
     Indication: Duchenne muscular dystrophy
     Dosage: 10 MILLIGRAM, QD
     Route: 048
  12. CALCIUM CITRATE [Concomitant]
     Active Substance: CALCIUM CITRATE
     Indication: Bone density decreased
     Dosage: 250 MILLIGRAM, TID
     Route: 048
  13. CALCIUM CITRATE [Concomitant]
     Active Substance: CALCIUM CITRATE
     Indication: Duchenne muscular dystrophy
  14. DIPHENHYDRAMINE [Concomitant]
     Active Substance: DIPHENHYDRAMINE
     Indication: Product used for unknown indication
     Dosage: 25 MILLIGRAM, QD
  15. EPINEPHRINE [Concomitant]
     Active Substance: EPINEPHRINE
     Indication: Anaphylactic reaction
     Route: 030

REACTIONS (9)
  - Pneumonia aspiration [Recovered/Resolved]
  - Upper respiratory tract infection [Recovering/Resolving]
  - Dysphagia [Not Recovered/Not Resolved]
  - Acute respiratory failure [Recovering/Resolving]
  - Sepsis [Recovered/Resolved]
  - Aspartate aminotransferase increased [Recovering/Resolving]
  - Alanine aminotransferase increased [Recovering/Resolving]
  - Cardiomyopathy [Recovering/Resolving]
  - Asthenia [Unknown]

NARRATIVE: CASE EVENT DATE: 20250107
